FAERS Safety Report 10155602 (Version 1)
Quarter: 2014Q2

REPORT INFORMATION
  Report Type: Spontaneous
  Country: US (occurrence: US)
  Receive Date: 20140506
  Receipt Date: 20140506
  Transmission Date: 20141212
  Serious: Yes (Hospitalization)
  Sender: FDA-Public Use
  Company Number: US-BAYER-2014-064704

PATIENT
  Age: 31 Year
  Sex: Female
  Weight: 86.17 kg

DRUGS (13)
  1. YAZ [Suspect]
  2. YASMIN [Suspect]
  3. OCELLA [Suspect]
  4. ZARAH [Suspect]
  5. SPIRONOLACTONE [Concomitant]
     Dosage: 50 MG, BID, TWICE DAILY
  6. ACETAMINOPHEN [Concomitant]
     Dosage: 650 MG,4 HR PRN
     Route: 048
  7. CELEXA [Concomitant]
     Dosage: 20 MG, DAILY
  8. CITALOPRAM [Concomitant]
     Dosage: 20 MG, DAILY
     Route: 048
  9. ADIPEX-P [Concomitant]
     Dosage: 37.5 MG, DAILY
     Route: 048
  10. PERCOCET [Concomitant]
  11. SENNA [Concomitant]
  12. ALBUTEROL [Concomitant]
  13. NICOTINE [Concomitant]

REACTIONS (1)
  - Pulmonary embolism [None]
